FAERS Safety Report 8021317-8 (Version None)
Quarter: 2012Q1

REPORT INFORMATION
  Report Type: 
  Country: None (occurrence: None)
  Receive Date: 20120104
  Receipt Date: 20111221
  Transmission Date: 20120608
  Serious: No
  Sender: FDA-Public Use
  Company Number: JP-UCBSA-047433

PATIENT
  Age: 68 Year
  Sex: Female

DRUGS (4)
  1. KEPPRA [Suspect]
     Route: 048
     Dates: start: 20110906, end: 20110920
  2. PLETAL [Concomitant]
     Dosage: DAILY DOSE: 50 MG
     Route: 048
  3. ZOLPIDEM [Concomitant]
     Dosage: 10 MG DAILY
     Route: 048
  4. CRESTOR [Concomitant]
     Dosage: DAILY DOSE: 2.5 MG
     Route: 048

REACTIONS (1)
  - WHITE BLOOD CELL COUNT DECREASED [None]
